FAERS Safety Report 5449692-9 (Version None)
Quarter: 2007Q3

REPORT INFORMATION
  Report Type: 
  Country: None (occurrence: None)
  Receive Date: 20070910
  Receipt Date: 20070910
  Transmission Date: 20080115
  Serious: No
  Sender: FDA-Public Use
  Company Number: None

PATIENT
  Sex: Female
  Weight: 65.7716 kg

DRUGS (1)
  1. LUPRON DEPOT [Suspect]
     Indication: HORMONE LEVEL ABNORMAL
     Dosage: 1/MOUTH
     Route: 048
     Dates: start: 19930101, end: 19950101

REACTIONS (6)
  - ARTHRITIS [None]
  - ASTHENIA [None]
  - BONE DISORDER [None]
  - GAIT DISTURBANCE [None]
  - MOVEMENT DISORDER [None]
  - MUSCULOSKELETAL STIFFNESS [None]
